FAERS Safety Report 9514028 (Version 2)
Quarter: 2013Q3

REPORT INFORMATION
  Report Type: Spontaneous
  Country: JP (occurrence: JP)
  Receive Date: 20130910
  Receipt Date: 20130910
  Transmission Date: 20140515
  Serious: Yes (Other)
  Sender: FDA-Public Use
  Company Number: JP-PFIZER INC-2013218560

PATIENT
  Age: 72 Year
  Sex: Male
  Weight: 60 kg

DRUGS (9)
  1. LYRICA [Suspect]
     Indication: CERVICAL SPINAL STENOSIS
     Dosage: 75 MG, 1X/DAY
     Route: 048
     Dates: start: 20130702, end: 20130716
  2. WARFARIN [Concomitant]
     Dosage: 3 MG/DAY (FREQUENCY UNSPECIFIED)
     Route: 048
     Dates: start: 20120127
  3. IRBETAN [Concomitant]
     Dosage: 100 MG, 1X/DAY
     Route: 048
     Dates: start: 20120127
  4. ZYLORIC [Concomitant]
     Dosage: 100 MG, 1X/DAY
     Route: 048
     Dates: start: 20120127
  5. BAYASPIRIN [Concomitant]
     Dosage: 100 MG, 1X/DAY
     Route: 048
     Dates: start: 20120127
  6. LOCHOL [Concomitant]
     Dosage: 20 MG, 1X/DAY
     Route: 048
     Dates: start: 20120127
  7. HALCION [Concomitant]
     Dosage: 0.25 MG, 1X/DAY
     Route: 048
     Dates: start: 20120127
  8. GASTER [Concomitant]
     Dosage: 20 MG/DAY (FREQUENCY UNSPECIFIED)
     Route: 048
     Dates: start: 20120127
  9. FAMOGAST [Concomitant]
     Dosage: 10 MG, 2X/DAY

REACTIONS (1)
  - International normalised ratio fluctuation [Unknown]
